FAERS Safety Report 10150423 (Version 1)
Quarter: 2014Q2

REPORT INFORMATION
  Report Type: Spontaneous
  Country: TR (occurrence: TR)
  Receive Date: 20140502
  Receipt Date: 20140502
  Transmission Date: 20141212
  Serious: Yes (Other)
  Sender: FDA-Public Use
  Company Number: TR-VERTEX PHARMACEUTICALS INC-2014-002180

PATIENT
  Sex: 0

DRUGS (3)
  1. INCIVO [Suspect]
     Indication: CHRONIC HEPATITIS C
     Route: 048
  2. RIBAVIRIN [Suspect]
     Indication: CHRONIC HEPATITIS C
     Dosage: UNK
     Route: 065
  3. PEG-INTERFERON [Suspect]
     Indication: CHRONIC HEPATITIS C
     Dosage: UNK
     Route: 065

REACTIONS (8)
  - Leukopenia [Unknown]
  - Anaemia [Recovered/Resolved]
  - Thrombocytopenia [Unknown]
  - Decreased appetite [Unknown]
  - Treatment noncompliance [Unknown]
  - Fatigue [Unknown]
  - Pruritus [Unknown]
  - Anorectal discomfort [Unknown]
